FAERS Safety Report 11626722 (Version 1)
Quarter: 2015Q4

REPORT INFORMATION
  Report Type: Spontaneous
  Country: JO (occurrence: JO)
  Receive Date: 20151013
  Receipt Date: 20151013
  Transmission Date: 20160304
  Serious: Yes (Other)
  Sender: FDA-Public Use
  Company Number: JO-ROXANE LABORATORIES, INC.-2015-RO-01644RO

PATIENT
  Age: 22 Year
  Sex: Male

DRUGS (3)
  1. PREDNISOLONE. [Concomitant]
     Active Substance: PREDNISOLONE
     Indication: COGAN^S SYNDROME
     Dosage: 50 MG
     Route: 065
  2. FOLIC ACID. [Concomitant]
     Active Substance: FOLIC ACID
     Indication: COGAN^S SYNDROME
     Route: 065
  3. METHOTREXATE [Suspect]
     Active Substance: METHOTREXATE
     Indication: COGAN^S SYNDROME
     Route: 065

REACTIONS (2)
  - Haematuria [Unknown]
  - Renal impairment [Unknown]
